FAERS Safety Report 6477487-6 (Version None)
Quarter: 2009Q4

REPORT INFORMATION
  Report Type: 
  Country: None (occurrence: None)
  Receive Date: 20091207
  Receipt Date: 20091113
  Transmission Date: 20100525
  Serious: Yes (Other)
  Sender: FDA-Public Use
  Company Number: CA-SANOFI-AVENTIS-A01200909849

PATIENT
  Age: 87 Year
  Sex: Male

DRUGS (10)
  1. LEUPRORELIN ACETATE [Suspect]
     Indication: PROSTATE CANCER
     Route: 058
     Dates: start: 20080917, end: 20080917
  2. LEUPRORELIN ACETATE [Suspect]
     Route: 058
     Dates: start: 20090108, end: 20090108
  3. LEUPRORELIN ACETATE [Suspect]
     Route: 058
     Dates: start: 20090429, end: 20090429
  4. LEUPRORELIN ACETATE [Suspect]
     Dosage: DOSE TEXT: ONCE EVERY 6 MONTHS
     Route: 058
     Dates: start: 20090917, end: 20090917
  5. APO-TIMOP [Concomitant]
     Indication: GLAUCOMA
     Dosage: DOSE TEXT: 1 DROP TWICE DAILY
     Route: 047
  6. HYDROCHLOROTHIAZIDE [Concomitant]
     Dosage: DOSE TEXT: 0.5 TALET DAILY
     Route: 048
  7. ACETYLSALICYLIC ACID [Concomitant]
     Route: 048
  8. MULTI-VITAMINS [Concomitant]
     Indication: SUPPLEMENTATION THERAPY
     Dosage: DOSE TEXT: 1 TABLET DAILY
     Route: 048
  9. MINERALS NOS [Concomitant]
     Indication: SUPPLEMENTATION THERAPY
     Dosage: DOSE TEXT: 1 TABLET DAILY
     Route: 048
  10. VITAMIN D [Concomitant]
     Indication: SUPPLEMENTATION THERAPY
     Dosage: DOSE TEXT: 1 TABLET DAILY
     Route: 048

REACTIONS (3)
  - ASCITES [None]
  - DYSPNOEA [None]
  - EAR DISCOMFORT [None]
